FAERS Safety Report 7118495-1 (Version None)
Quarter: 2010Q4

REPORT INFORMATION
  Report Type: 
  Country: None (occurrence: None)
  Receive Date: 20101123
  Receipt Date: 20101115
  Transmission Date: 20110411
  Serious: Yes (Other)
  Sender: FDA-Public Use
  Company Number: DE-GENZYME-CERZ-1001649

PATIENT

DRUGS (1)
  1. CEREZYME [Suspect]
     Dosage: UNK
     Route: 042

REACTIONS (2)
  - BONE PAIN [None]
  - OSTEONECROSIS [None]
